FAERS Safety Report 20911549 (Version 1)
Quarter: 2022Q2

REPORT INFORMATION
  Report Type: Report from Study
  Country: BR (occurrence: BR)
  Receive Date: 20220603
  Receipt Date: 20220603
  Transmission Date: 20220721
  Serious: Yes (Death, Hospitalization, Other)
  Sender: FDA-Public Use
  Company Number: BR-TAKEDA-2022TUS036642

PATIENT
  Age: 14 Year
  Sex: Male

DRUGS (17)
  1. IDURSULFASE [Suspect]
     Active Substance: IDURSULFASE
     Indication: Mucopolysaccharidosis II
     Dosage: 0.5 MILLIGRAM/KILOGRAM
     Route: 042
     Dates: start: 20091101
  2. IDURSULFASE [Suspect]
     Active Substance: IDURSULFASE
     Dosage: 0.5 MILLIGRAM/KILOGRAM, 1/WEEK
     Route: 042
     Dates: start: 20110526
  3. HYDROXYZINE HYDROCHLORIDE [Concomitant]
     Active Substance: HYDROXYZINE HYDROCHLORIDE
     Indication: Respiratory disorder
     Dosage: UNK
     Route: 048
  4. ACETAZOLAMIDE [Concomitant]
     Active Substance: ACETAZOLAMIDE
     Dosage: UNK
     Route: 048
  5. BIPERIDEN [Concomitant]
     Active Substance: BIPERIDEN
     Dosage: UNK
     Route: 048
  6. POLYETHYLENE GLYCOLS [Concomitant]
     Active Substance: POLYETHYLENE GLYCOLS
     Dosage: UNK
     Route: 048
  7. VALPROATE SODIUM [Concomitant]
     Active Substance: VALPROATE SODIUM
     Indication: Behaviour disorder
     Dosage: UNK
     Route: 048
  8. DIPHENHYDRAMINE [Concomitant]
     Active Substance: DIPHENHYDRAMINE
     Indication: Hypersensitivity
     Dosage: UNK
     Route: 065
     Dates: start: 20100104, end: 20100104
  9. DIPYRONE [Concomitant]
     Active Substance: DIPYRONE
     Indication: Umbilical hernia
     Dosage: UNK
     Route: 042
     Dates: start: 20140512, end: 20140513
  10. DIPYRONE [Concomitant]
     Active Substance: DIPYRONE
     Indication: Device malfunction
  11. IBUPROFEN [Concomitant]
     Active Substance: IBUPROFEN
     Indication: Umbilical hernia
     Dosage: UNK
     Route: 048
     Dates: start: 20140512, end: 20140513
  12. IBUPROFEN [Concomitant]
     Active Substance: IBUPROFEN
     Indication: Device malfunction
  13. ACETAMINOPHEN [Concomitant]
     Active Substance: ACETAMINOPHEN
     Indication: Umbilical hernia
     Dosage: UNK
     Route: 048
     Dates: start: 20140512, end: 20140513
  14. ACETAMINOPHEN [Concomitant]
     Active Substance: ACETAMINOPHEN
     Indication: Device malfunction
     Dosage: UNK
     Route: 048
     Dates: start: 20160120, end: 20160120
  15. ACETAMINOPHEN [Concomitant]
     Active Substance: ACETAMINOPHEN
     Indication: Irritability
  16. HALOPERIDOL [Concomitant]
     Active Substance: HALOPERIDOL
     Indication: Irritability
     Dosage: UNK
     Route: 048
     Dates: start: 20160217, end: 20160225
  17. RISPERIDONE [Concomitant]
     Active Substance: RISPERIDONE
     Dosage: UNK
     Route: 048
     Dates: start: 20160318

REACTIONS (2)
  - Pneumonia [Fatal]
  - Sepsis [Fatal]

NARRATIVE: CASE EVENT DATE: 20220529
